FAERS Safety Report 21249673 (Version 1)
Quarter: 2022Q3

REPORT INFORMATION
  Report Type: Spontaneous
  Country: US (occurrence: None)
  Receive Date: 20220824
  Receipt Date: 20220824
  Transmission Date: 20221026
  Serious: No
  Sender: FDA-Public Use
  Company Number: None

PATIENT
  Age: 80 Year
  Sex: Female
  Weight: 62.14 kg

DRUGS (9)
  1. XIIDRA [Suspect]
     Active Substance: LIFITEGRAST
     Indication: Dry eye
     Dosage: FREQUENCY : TWICE A DAY;?
     Route: 031
     Dates: start: 202208
  2. NIFEDIPINE [Concomitant]
     Active Substance: NIFEDIPINE
  3. OLMESARTAN [Concomitant]
     Active Substance: OLMESARTAN
  4. ALDACTONE [Concomitant]
     Active Substance: SPIRONOLACTONE
  5. EZETIMIBE [Concomitant]
     Active Substance: EZETIMIBE
  6. ASPIRIN [Concomitant]
     Active Substance: ASPIRIN
  7. PREVACID [Concomitant]
     Active Substance: LANSOPRAZOLE
  8. STOOL SOFTENER (DOCUSATE) [Concomitant]
     Active Substance: DOCUSATE
  9. ALEVE [Concomitant]
     Active Substance: NAPROXEN SODIUM

REACTIONS (4)
  - Burning sensation [None]
  - Vision blurred [None]
  - Erythema [None]
  - Taste disorder [None]

NARRATIVE: CASE EVENT DATE: 20220808
